FAERS Safety Report 18849410 (Version 1)
Quarter: 2021Q1

REPORT INFORMATION
  Report Type: Spontaneous
  Country: IL (occurrence: IL)
  Receive Date: 20210204
  Receipt Date: 20210204
  Transmission Date: 20210419
  Serious: Yes (Hospitalization, Other)
  Sender: FDA-Public Use
  Company Number: IL-GLAXOSMITHKLINE-IL2021GSK019964

PATIENT
  Age: 19 Year
  Sex: Female

DRUGS (2)
  1. CEFOVIT [Suspect]
     Active Substance: CEPHALEXIN
     Indication: TONSILLITIS
     Dosage: 250 MG, QID
  2. ZINNAT [Suspect]
     Active Substance: CEFUROXIME
     Indication: TONSILLITIS
     Dosage: 500 MG, BID

REACTIONS (17)
  - Pyrexia [Recovered/Resolved]
  - Condition aggravated [Recovered/Resolved]
  - Drug reaction with eosinophilia and systemic symptoms [Recovered/Resolved]
  - Face oedema [Recovered/Resolved]
  - Leukocytosis [Recovered/Resolved]
  - Rash [Recovered/Resolved]
  - Lung infiltration [Recovered/Resolved]
  - Lymphadenopathy [Recovered/Resolved]
  - Epidermal necrosis [Recovered/Resolved]
  - Acute febrile neutrophilic dermatosis [Recovered/Resolved]
  - Crepitations [Recovered/Resolved]
  - Anaemia [Recovered/Resolved]
  - Rash pustular [Recovered/Resolved]
  - Target skin lesion [Recovered/Resolved]
  - Oral mucosa erosion [Recovered/Resolved]
  - Eosinophilia [Recovered/Resolved]
  - Hypocomplementaemia [Recovered/Resolved]
